FAERS Safety Report 12307831 (Version 1)
Quarter: 2016Q2

REPORT INFORMATION
  Report Type: Spontaneous
  Country: US (occurrence: US)
  Receive Date: 20160426
  Receipt Date: 20160426
  Transmission Date: 20160815
  Serious: No
  Sender: FDA-Public Use
  Company Number: US-ALKERMES INC.-ALK-2015-001588

PATIENT

DRUGS (2)
  1. BENZODIAZEPINE [Concomitant]
     Active Substance: BENZODIAZEPINE
     Indication: ANXIETY
     Dosage: UNK
  2. VIVITROL [Suspect]
     Active Substance: NALTREXONE
     Indication: DRUG DEPENDENCE
     Dosage: 380 MG, QMO
     Route: 030
     Dates: start: 20151201

REACTIONS (3)
  - Cough [Unknown]
  - Drug effect decreased [Unknown]
  - Malaise [Unknown]

NARRATIVE: CASE EVENT DATE: 20151208
